FAERS Safety Report 5716577-X (Version None)
Quarter: 2008Q2

REPORT INFORMATION
  Report Type: 
  Country: None (occurrence: None)
  Receive Date: 20080424
  Receipt Date: 20080410
  Transmission Date: 20081010
  Serious: Yes (Other)
  Sender: FDA-Public Use
  Company Number: JP-AMGEN-US275059

PATIENT
  Sex: Female

DRUGS (4)
  1. ENBREL [Suspect]
     Indication: RHEUMATOID ARTHRITIS
     Route: 058
     Dates: start: 20080310, end: 20080402
  2. ISONIAZID [Suspect]
     Indication: DRUG USE FOR UNKNOWN INDICATION
     Route: 048
     Dates: start: 20080218, end: 20080408
  3. CELECOXIB [Concomitant]
     Route: 048
  4. PREDONINE [Concomitant]
     Route: 048

REACTIONS (1)
  - LIVER DISORDER [None]
